FAERS Safety Report 4569820-7 (Version None)
Quarter: 2005Q1

REPORT INFORMATION
  Report Type: 
  Country: None (occurrence: None)
  Receive Date: 20050131
  Receipt Date: 20050113
  Transmission Date: 20050727
  Serious: Yes (Other)
  Sender: FDA-Public Use
  Company Number: 174178

PATIENT
  Sex: Female
  Weight: 62.1428 kg

DRUGS (2)
  1. AVONEX [Suspect]
     Indication: MULTIPLE SCLEROSIS
     Dosage: 30 UG; QW; IM
     Route: 030
     Dates: start: 20000101, end: 20020101
  2. BACLOFEN [Concomitant]

REACTIONS (5)
  - ARTHRITIS [None]
  - ATROPHY [None]
  - BREAST CANCER FEMALE [None]
  - DIFFICULTY IN WALKING [None]
  - THYROID DISORDER [None]
